FAERS Safety Report 24660281 (Version 3)
Quarter: 2024Q4

REPORT INFORMATION
  Report Type: Spontaneous
  Country: CZ (occurrence: CZ)
  Receive Date: 20241125
  Receipt Date: 20241210
  Transmission Date: 20250115
  Serious: Yes (Other)
  Sender: PFIZER
  Company Number: CZ-PFIZER INC-PV202400151127

PATIENT
  Age: 59 Year
  Sex: Female

DRUGS (8)
  1. GEMTUZUMAB OZOGAMICIN [Suspect]
     Active Substance: GEMTUZUMAB OZOGAMICIN
     Indication: Acute myeloid leukaemia
     Dosage: 3 + 7 (IDA) + GO (D1,4,7)
  2. IDARUBICIN HYDROCHLORIDE [Suspect]
     Active Substance: IDARUBICIN HYDROCHLORIDE
     Indication: Acute myeloid leukaemia
     Dosage: 3 + 7 (IDA) + GO (D1,4,7)
  3. CYTARABINE [Suspect]
     Active Substance: CYTARABINE
     Indication: Acute myeloid leukaemia
     Dosage: 3 + 7 (IDA) + GO (D1,4,7)
  4. BISOPROLOL FUMARATE [Concomitant]
     Active Substance: BISOPROLOL FUMARATE
  5. RAMIPRIL [Concomitant]
     Active Substance: RAMIPRIL
  6. VALACYCLOVIR [Concomitant]
     Active Substance: VALACYCLOVIR HYDROCHLORIDE
     Indication: Prophylaxis
  7. SULFAMETHOXAZOLE\TRIMETHOPRIM [Concomitant]
     Active Substance: SULFAMETHOXAZOLE\TRIMETHOPRIM
     Indication: Prophylaxis
  8. POSACONAZOLE [Concomitant]
     Active Substance: POSACONAZOLE
     Indication: Prophylaxis

REACTIONS (4)
  - Colitis ischaemic [Recovered/Resolved]
  - Febrile neutropenia [Recovered/Resolved]
  - Device related sepsis [Recovered/Resolved]
  - Neoplasm progression [Recovered/Resolved]
